FAERS Safety Report 7078598-7 (Version None)
Quarter: 2010Q4

REPORT INFORMATION
  Report Type: 
  Country: None (occurrence: None)
  Receive Date: 20101101
  Receipt Date: 20101101
  Transmission Date: 20110411
  Serious: Yes (Other)
  Sender: FDA-Public Use
  Company Number: None

PATIENT
  Sex: Female
  Weight: 9.0719 kg

DRUGS (3)
  1. TYLENOL INFANTS DROPS 80MG PER 0.8ML MCNEIL CONSUMER HEALTH CARE [Suspect]
     Indication: IMMUNISATION
     Dosage: 0.8 ONCE/IMMUNIZATION GAVE ONE DOSAGE
     Dates: start: 20101006, end: 20101007
  2. TYLENOL INFANT DROPS 80MG PER 0.8ML MCNEIL CONSUMER HEALTH CCRE [Suspect]
     Indication: EAR INFECTION
     Dosage: 0.8+0.4ML ONCE FOR COLD GAVE ONE DOSAGE
     Dates: start: 20101027, end: 20101028
  3. TYLENOL INFANT DROPS 80MG PER 0.8ML MCNEIL CONSUMER HEALTH CCRE [Suspect]
     Indication: NASOPHARYNGITIS
     Dosage: 0.8+0.4ML ONCE FOR COLD GAVE ONE DOSAGE
     Dates: start: 20101027, end: 20101028

REACTIONS (4)
  - EAR INFECTION [None]
  - NASOPHARYNGITIS [None]
  - PRODUCT QUALITY ISSUE [None]
  - URTICARIA [None]
